FAERS Safety Report 8348021-0 (Version None)
Quarter: 2012Q2

REPORT INFORMATION
  Report Type: 
  Country: None (occurrence: None)
  Receive Date: 20120509
  Receipt Date: 20120501
  Transmission Date: 20120825
  Serious: Yes (Other)
  Sender: FDA-Public Use
  Company Number: US-BRISTOL-MYERS SQUIBB COMPANY-16562324

PATIENT
  Sex: Female

DRUGS (1)
  1. ORENCIA [Suspect]
     Dosage: NO INFU:5-6; LAST DOSE ON:APR12 INTERRUPTED IN FEB
     Route: 042
     Dates: start: 20111031

REACTIONS (1)
  - SURGERY [None]
